FAERS Safety Report 9766304 (Version 1)
Quarter: 2013Q4

REPORT INFORMATION
  Report Type: Spontaneous
  Country: US (occurrence: US)
  Receive Date: 20131217
  Receipt Date: 20131217
  Transmission Date: 20140711
  Serious: No
  Sender: FDA-Public Use
  Company Number: US-VIIV HEALTHCARE LIMITED-A1035154A

PATIENT
  Age: 55 Year
  Sex: Male

DRUGS (9)
  1. TRIZIVIR [Suspect]
     Indication: HIV INFECTION
     Dosage: 1TAB TWICE PER DAY
     Route: 048
     Dates: start: 201304
  2. ATENOLOL [Concomitant]
  3. GABAPENTIN [Concomitant]
  4. ATORVASTATIN [Concomitant]
  5. COLCRYS [Concomitant]
  6. FLUCONAZOLE [Concomitant]
  7. ESCITALOPRAM [Concomitant]
  8. REMERON [Concomitant]
  9. PLAVIX [Concomitant]

REACTIONS (2)
  - Vertigo [Unknown]
  - Blood pressure decreased [Unknown]
